FAERS Safety Report 8179548-2 (Version None)
Quarter: 2012Q1

REPORT INFORMATION
  Report Type: 
  Country: None (occurrence: None)
  Receive Date: 20120229
  Receipt Date: 20120215
  Transmission Date: 20120608
  Serious: Yes (Hospitalization, Disabling, Other)
  Sender: FDA-Public Use
  Company Number: 2012MA002089

PATIENT
  Age: 61 Year
  Sex: Female

DRUGS (15)
  1. ASCORBIC ACID [Concomitant]
  2. ALPRAZOLAM [Concomitant]
  3. TOPROL-XL [Concomitant]
  4. CALCIUM + D [Concomitant]
  5. MICARDIS [Concomitant]
  6. CYCLOBENZAPRINE [Concomitant]
  7. METOPROLOL SUCCINATE [Concomitant]
  8. VITAMIN B COMPLEX CAP [Concomitant]
  9. LISINOPRIL [Concomitant]
  10. XANAX [Concomitant]
  11. LEXAPRO [Concomitant]
  12. AMBIEN [Concomitant]
  13. DIGOXIN [Suspect]
     Indication: PRODUCT USED FOR UNKNOWN INDICATION
     Dosage: 0.125 MG, QD, PO
     Route: 048
     Dates: start: 20040301
  14. M.V.I. [Concomitant]
  15. FOLIC ACID [Concomitant]

REACTIONS (44)
  - CHOLECYSTITIS [None]
  - DYSPHAGIA [None]
  - DUODENITIS [None]
  - DILATATION ATRIAL [None]
  - TRICUSPID VALVE INCOMPETENCE [None]
  - DILATATION VENTRICULAR [None]
  - CONSTIPATION [None]
  - ECONOMIC PROBLEM [None]
  - COLONIC POLYP [None]
  - NAUSEA [None]
  - RENAL CYST [None]
  - EXOSTOSIS [None]
  - PULMONARY VALVE INCOMPETENCE [None]
  - ATRIOVENTRICULAR BLOCK FIRST DEGREE [None]
  - CARDIOMEGALY [None]
  - PERIPHERAL COLDNESS [None]
  - FATIGUE [None]
  - SUPRAVENTRICULAR TACHYCARDIA [None]
  - ELECTROCARDIOGRAM T WAVE INVERSION [None]
  - GASTROOESOPHAGEAL REFLUX DISEASE [None]
  - DIVERTICULUM [None]
  - HYPERTENSION [None]
  - ANXIETY [None]
  - GASTRIC ULCER [None]
  - INTERVERTEBRAL DISC DEGENERATION [None]
  - ELECTROCARDIOGRAM T WAVE ABNORMAL [None]
  - CHOLELITHIASIS [None]
  - OESOPHAGEAL ULCER [None]
  - GALLBLADDER DISORDER [None]
  - MULTIPLE INJURIES [None]
  - GASTRITIS EROSIVE [None]
  - PALPITATIONS [None]
  - HEPATIC CYST [None]
  - RIB FRACTURE [None]
  - SPINAL OSTEOARTHRITIS [None]
  - MITRAL VALVE INCOMPETENCE [None]
  - CEREBELLAR ATROPHY [None]
  - ABDOMINAL PAIN [None]
  - OESOPHAGEAL STENOSIS [None]
  - HYPOAESTHESIA [None]
  - DYSPNOEA EXERTIONAL [None]
  - BACK PAIN [None]
  - SINUS BRADYCARDIA [None]
  - ELECTROCARDIOGRAM ST SEGMENT ABNORMAL [None]
